FAERS Safety Report 16131343 (Version 5)
Quarter: 2019Q3

REPORT INFORMATION
  Report Type: Spontaneous
  Country: BR (occurrence: BR)
  Receive Date: 20190328
  Receipt Date: 20190824
  Transmission Date: 20191004
  Serious: Yes (Life-Threatening, Other)
  Sender: FDA-Public Use
  Company Number: PHHY2019BR065441

PATIENT
  Age: 18 Year
  Sex: Male
  Weight: 28.2 kg

DRUGS (3)
  1. TEGRETOL [Suspect]
     Active Substance: CARBAMAZEPINE
     Indication: EPILEPSY
     Dosage: 10 ML, TID
     Route: 048
     Dates: start: 201112
  2. TEGRETOL [Suspect]
     Active Substance: CARBAMAZEPINE
     Dosage: UNK (ROUTE: CATHETER)
     Route: 065
  3. TEGRETOL [Suspect]
     Active Substance: CARBAMAZEPINE
     Indication: MENINGITIS
     Dosage: 10 ML, TID
     Route: 048
     Dates: end: 2007

REACTIONS (11)
  - Myocardial infarction [Unknown]
  - Seizure [Not Recovered/Not Resolved]
  - Drug dependence [Unknown]
  - Hyperacusis [Not Recovered/Not Resolved]
  - Fear [Not Recovered/Not Resolved]
  - Product quality issue [Not Recovered/Not Resolved]
  - Irritability [Not Recovered/Not Resolved]
  - Product use in unapproved indication [Not Recovered/Not Resolved]
  - Product storage error [Unknown]
  - Mental disorder [Not Recovered/Not Resolved]
  - Product physical issue [Not Recovered/Not Resolved]

NARRATIVE: CASE EVENT DATE: 20190315
